FAERS Safety Report 4435451-2 (Version None)
Quarter: 2004Q3

REPORT INFORMATION
  Report Type: 
  Country: None (occurrence: None)
  Receive Date: 20040826
  Receipt Date: 20040811
  Transmission Date: 20050211
  Serious: Yes (Hospitalization)
  Sender: FDA-Public Use
  Company Number: S04-UKI-03884-01

PATIENT
  Age: 22 Year
  Sex: Female

DRUGS (2)
  1. CIPRALEX (ESCITALOPRAM) [Suspect]
     Indication: DEPRESSION
     Dates: start: 20040609, end: 20040802
  2. FLUCLOXACILLIN [Concomitant]

REACTIONS (1)
  - CONVULSION [None]
